FAERS Safety Report 5533606-7 (Version None)
Quarter: 2007Q4

REPORT INFORMATION
  Report Type: 
  Country: None (occurrence: None)
  Receive Date: 20071129
  Receipt Date: 20071115
  Transmission Date: 20080405
  Serious: Yes (Hospitalization)
  Sender: FDA-Public Use
  Company Number: 230373J07USA

PATIENT
  Age: 60 Year
  Sex: Female
  Weight: 69.8539 kg

DRUGS (5)
  1. REBIF [Suspect]
     Indication: MULTIPLE SCLEROSIS
     Dosage: 22 MCG, 3 IN 1 WEEKS; SUBCUTANEOUS
     Route: 058
     Dates: start: 20060220, end: 20070601
  2. BACLOFEN [Concomitant]
  3. PROVIGIL [Concomitant]
  4. LEXAPRO [Concomitant]
  5. NORVASC [Concomitant]

REACTIONS (7)
  - CONDITION AGGRAVATED [None]
  - DEHYDRATION [None]
  - DISORIENTATION [None]
  - DRUG HYPERSENSITIVITY [None]
  - MULTIPLE SCLEROSIS [None]
  - MUSCULOSKELETAL STIFFNESS [None]
  - PYREXIA [None]
